FAERS Safety Report 7383787-8 (Version None)
Quarter: 2011Q1

REPORT INFORMATION
  Report Type: 
  Country: None (occurrence: None)
  Receive Date: 20110330
  Receipt Date: 20110325
  Transmission Date: 20110831
  Serious: Yes (Hospitalization)
  Sender: FDA-Public Use
  Company Number: JP-PFIZER INC-2011066372

PATIENT
  Age: 13 Year
  Sex: Female

DRUGS (8)
  1. SOMATROPIN [Suspect]
     Dosage: 6.0 MG, WEEKLY
     Route: 058
     Dates: start: 20090713
  2. SOMATROPIN [Suspect]
     Dosage: 7.2 MG, WEEKLY
     Route: 058
     Dates: start: 20090825
  3. SOMATROPIN [Suspect]
     Dosage: 5.4 MG, WEEKLY
     Route: 058
     Dates: start: 20090331
  4. SOMATROPIN [Suspect]
     Dosage: 8.4 MG, WEEKLY
     Route: 058
     Dates: start: 20100601
  5. MEXITIL [Concomitant]
     Dosage: UNK
     Route: 048
     Dates: start: 20100915
  6. SOMATROPIN [Suspect]
     Indication: SMALL FOR DATES BABY
     Dosage: 4.8 MG, WEEKLY
     Route: 058
     Dates: start: 20081111
  7. SOMATROPIN [Suspect]
     Dosage: 10.8 MG, WEEKLY
     Route: 058
     Dates: start: 20101004
  8. LEUPLIN [Concomitant]
     Indication: PRECOCIOUS PUBERTY
     Dosage: UNK
     Route: 058
     Dates: start: 20070921, end: 20090511

REACTIONS (1)
  - SYNOVIAL DISORDER [None]
